FAERS Safety Report 7142294-8 (Version None)
Quarter: 2010Q4

REPORT INFORMATION
  Report Type: 
  Country: None (occurrence: None)
  Receive Date: 20101207
  Receipt Date: 20101124
  Transmission Date: 20110411
  Serious: No
  Sender: FDA-Public Use
  Company Number: US-PFIZER INC-US-WYE-H17392410

PATIENT
  Sex: Female
  Weight: 68 kg

DRUGS (8)
  1. PREMPRO [Suspect]
     Indication: MENOPAUSE
     Dosage: UNK
     Route: 048
     Dates: start: 19930101
  2. PREMPRO [Suspect]
     Dosage: EVERY OTHER DAY
     Route: 048
  3. PREMPRO [Suspect]
     Dosage: NEXT HIGHER DOSE
     Route: 048
     Dates: start: 20090101
  4. PREMPRO [Suspect]
     Dosage: NEXT LOWER DOSE ,0.45/1.5
     Route: 048
  5. IBANDRONATE SODIUM [Concomitant]
     Indication: OSTEOPENIA
     Dosage: 150 MG MONTHLY
     Route: 048
     Dates: start: 20081230
  6. LEVOTHYROXINE [Concomitant]
     Indication: HYPOTHYROIDISM
     Dosage: 0.112 MG, UNK
     Route: 048
  7. AMBIEN [Concomitant]
     Indication: INSOMNIA
     Dosage: 10 MG, UNK
     Route: 048
     Dates: start: 20060322
  8. METROGEL [Concomitant]
     Indication: ROSACEA
     Dosage: 1 PER WEEK
     Route: 061

REACTIONS (3)
  - DRUG EFFECT DECREASED [None]
  - INAPPROPRIATE SCHEDULE OF DRUG ADMINISTRATION [None]
  - WRONG TECHNIQUE IN DRUG USAGE PROCESS [None]
